FAERS Safety Report 5387410-3 (Version None)
Quarter: 2007Q3

REPORT INFORMATION
  Report Type: 
  Country: None (occurrence: None)
  Receive Date: 20070712
  Receipt Date: 20070626
  Transmission Date: 20080115
  Serious: Yes (Death)
  Sender: FDA-Public Use
  Company Number: DAV-AE-MTX-07-028

PATIENT
  Age: 63 Year
  Sex: Female

DRUGS (1)
  1. METHOTREXATE [Suspect]
     Indication: CENTRAL NERVOUS SYSTEM LYMPHOMA
     Dosage: 6GM/M2-IV; DAYS 1 AND 10

REACTIONS (1)
  - NEUROTOXICITY [None]
